FAERS Safety Report 19401584 (Version 3)
Quarter: 2022Q1

REPORT INFORMATION
  Report Type: Spontaneous
  Country: CZ (occurrence: CZ)
  Receive Date: 20210611
  Receipt Date: 20220203
  Transmission Date: 20220423
  Serious: Yes (Death, Other)
  Sender: FDA-Public Use
  Company Number: CZ-CELLTRION INC.-2021CZ007022

PATIENT

DRUGS (31)
  1. RITUXIMAB [Suspect]
     Active Substance: RITUXIMAB
     Indication: Diffuse large B-cell lymphoma
     Dosage: UNK (R-CHOP)
  2. RITUXIMAB [Suspect]
     Active Substance: RITUXIMAB
     Indication: Disease progression
     Dosage: UNK
     Route: 065
  3. RITUXIMAB [Suspect]
     Active Substance: RITUXIMAB
     Indication: Chronic lymphocytic leukaemia
     Dosage: UNK, ONE CYCLE
     Dates: start: 202008
  4. RITUXIMAB [Suspect]
     Active Substance: RITUXIMAB
     Dosage: UNK UNK, QCY
     Dates: start: 201901
  5. CYCLOPHOSPHAMIDE [Suspect]
     Active Substance: CYCLOPHOSPHAMIDE
     Indication: Chronic lymphocytic leukaemia
     Dosage: UNK (R-CHOP)
  6. CYCLOPHOSPHAMIDE [Suspect]
     Active Substance: CYCLOPHOSPHAMIDE
     Indication: Disease progression
     Dosage: UNK, ONE CYCLE
     Dates: start: 202008
  7. CYCLOPHOSPHAMIDE [Suspect]
     Active Substance: CYCLOPHOSPHAMIDE
     Indication: Diffuse large B-cell lymphoma
     Dosage: UNK UNK, QCY
     Dates: start: 201901
  8. DOXORUBICIN HYDROCHLORIDE [Suspect]
     Active Substance: DOXORUBICIN HYDROCHLORIDE
     Indication: Chronic lymphocytic leukaemia
     Dosage: UNK
  9. DOXORUBICIN [Suspect]
     Active Substance: DOXORUBICIN
     Indication: Chronic lymphocytic leukaemia
     Dosage: UNK, ONE CYCLE (R-CHOP)
     Dates: start: 202008
  10. DOXORUBICIN [Suspect]
     Active Substance: DOXORUBICIN
     Indication: Disease progression
  11. DOXORUBICIN [Suspect]
     Active Substance: DOXORUBICIN
     Indication: Diffuse large B-cell lymphoma
  12. PREDNISONE [Suspect]
     Active Substance: PREDNISONE
     Indication: Chronic lymphocytic leukaemia
     Dosage: UNK (R-CHOP)
     Route: 065
  13. PREDNISONE [Suspect]
     Active Substance: PREDNISONE
     Indication: Diffuse large B-cell lymphoma
     Dosage: UNK, ONE CYCLE
     Dates: start: 202008
  14. PREDNISONE [Suspect]
     Active Substance: PREDNISONE
     Indication: Disease progression
  15. VINCRISTINE [Suspect]
     Active Substance: VINCRISTINE
     Indication: Chronic lymphocytic leukaemia
     Dosage: UNK (R-CHOP)
  16. VINCRISTINE [Suspect]
     Active Substance: VINCRISTINE
     Indication: Diffuse large B-cell lymphoma
     Dosage: UNK, ONE CYCLE
     Dates: start: 202008
  17. VINCRISTINE [Suspect]
     Active Substance: VINCRISTINE
     Indication: Disease progression
  18. VINCRISTINE SULFATE [Suspect]
     Active Substance: VINCRISTINE SULFATE
     Indication: Diffuse large B-cell lymphoma
     Route: 065
  19. DOXIL [Suspect]
     Active Substance: DOXORUBICIN HYDROCHLORIDE
     Indication: Diffuse large B-cell lymphoma
     Dosage: INFUSION
     Route: 065
  20. CYCLOPHOSPHAMIDE [Suspect]
     Active Substance: CYCLOPHOSPHAMIDE
     Indication: Diffuse large B-cell lymphoma
     Route: 065
  21. FLUDARABINE PHOSPHATE [Suspect]
     Active Substance: FLUDARABINE PHOSPHATE
     Indication: Chronic lymphocytic leukaemia
     Dosage: UNK UNK, QCY
     Dates: start: 201901
  22. IBRUTINIB [Concomitant]
     Active Substance: IBRUTINIB
     Indication: Chronic lymphocytic leukaemia
     Dosage: 420 MG
     Route: 065
     Dates: start: 2019
  23. IBRUTINIB [Concomitant]
     Active Substance: IBRUTINIB
     Dosage: UNK
     Route: 065
  24. MYCOPHENOLATE MOFETIL [Concomitant]
     Active Substance: MYCOPHENOLATE MOFETIL
     Indication: Immunosuppression
     Dosage: UNK
     Dates: start: 2019
  25. TACROLIMUS [Concomitant]
     Active Substance: TACROLIMUS
     Indication: Immunosuppression
     Dosage: UNK
     Dates: start: 2019
  26. SULFAMETHOXAZOLE\TRIMETHOPRIM [Concomitant]
     Active Substance: SULFAMETHOXAZOLE\TRIMETHOPRIM
     Indication: Infection prophylaxis
  27. SULFAMETHOXAZOLE\TRIMETHOPRIM [Concomitant]
     Active Substance: SULFAMETHOXAZOLE\TRIMETHOPRIM
     Indication: Pneumocystis jirovecii pneumonia
  28. VALACYCLOVIR [Concomitant]
     Active Substance: VALACYCLOVIR HYDROCHLORIDE
     Indication: Infection prophylaxis
  29. VALACYCLOVIR [Concomitant]
     Active Substance: VALACYCLOVIR HYDROCHLORIDE
     Indication: Herpes simplex
  30. GRANULOCYTE COLONY-STIMULATING FACTOR NOS [Concomitant]
     Active Substance: GRANULOCYTE COLONY-STIMULATING FACTOR NOS
     Indication: Infection prophylaxis
  31. GRANULOCYTE COLONY-STIMULATING FACTOR NOS [Concomitant]
     Active Substance: GRANULOCYTE COLONY-STIMULATING FACTOR NOS
     Indication: Febrile neutropenia

REACTIONS (6)
  - Chronic lymphocytic leukaemia [Fatal]
  - Diffuse large B-cell lymphoma [Fatal]
  - Disease progression [Fatal]
  - Toxicity to various agents [Unknown]
  - Febrile neutropenia [Unknown]
  - Neutropenia [Unknown]

NARRATIVE: CASE EVENT DATE: 20190101
